FAERS Safety Report 7585990-0 (Version None)
Quarter: 2011Q3

REPORT INFORMATION
  Report Type: 
  Country: None (occurrence: None)
  Receive Date: 20110701
  Receipt Date: 20110627
  Transmission Date: 20111222
  Serious: Yes (Death)
  Sender: FDA-Public Use
  Company Number: US-ASTELLAS-2011US003415

PATIENT
  Sex: Female
  Weight: 90 kg

DRUGS (2)
  1. ABELCET [Concomitant]
     Indication: PRODUCT USED FOR UNKNOWN INDICATION
     Dosage: 454 MG, UID/QD
     Route: 065
  2. MYCAMINE [Suspect]
     Indication: CANDIDIASIS
     Dosage: 100 MG, UID/QD
     Route: 042
     Dates: start: 20110520, end: 20110604

REACTIONS (1)
  - DEATH [None]
